FAERS Safety Report 7380620-5 (Version None)
Quarter: 2011Q1

REPORT INFORMATION
  Report Type: 
  Country: None (occurrence: None)
  Receive Date: 20110329
  Receipt Date: 20110305
  Transmission Date: 20110831
  Serious: No
  Sender: FDA-Public Use
  Company Number: US-B.I. PHARMACEUTICALS,INC./RIDGEFIELD-2011-BP-07274BP

PATIENT
  Sex: Male

DRUGS (9)
  1. MULTI-VITAMIN [Concomitant]
     Dosage: TWICE DAILY
     Route: 048
  2. PRADAXA [Suspect]
     Indication: ATRIAL FIBRILLATION
     Dosage: 300 MG
     Route: 048
     Dates: start: 20110211
  3. VOLTURNA 150-160 MG [Concomitant]
     Indication: HYPERTENSION
     Dosage: ONCE DAILY
     Route: 048
  4. LORAZEPAM [Concomitant]
     Indication: SLEEP DISORDER
     Dosage: ONCE DAILY
     Route: 048
  5. VITAMIN D [Concomitant]
     Dosage: ONCE DAILY
     Route: 048
  6. LEVOTHYROXINE SODIUM [Concomitant]
     Indication: HYPOTHYROIDISM
     Dosage: 0.088 MCG
     Route: 048
  7. ASPIRIN [Concomitant]
     Indication: CARDIAC DISORDER
     Dosage: ONCE DAILY
     Route: 048
  8. MAGNESIUM [Concomitant]
     Indication: HYPOMAGNESAEMIA
     Dosage: ONCE DAILY
     Route: 048
     Dates: start: 20110101
  9. T-3 (LIOTHYRONINE) [Concomitant]
     Indication: HYPOTHYROIDISM
     Dosage: ONCE DAILY
     Route: 048

REACTIONS (1)
  - OCULAR HYPERAEMIA [None]
